FAERS Safety Report 9153492 (Version 1)
Quarter: 2013Q1

REPORT INFORMATION
  Report Type: Spontaneous
  Country: TR (occurrence: None)
  Receive Date: 20130204
  Receipt Date: 20130204
  Transmission Date: 20140127
  Serious: Yes (Other)
  Sender: FDA-Public Use
  Company Number: TR-JNJFOC-20130112370

PATIENT
  Age: 60 Year
  Sex: 0

DRUGS (1)
  1. DACOGEN (DECITABINE) LYOPHILIZED POWDER [Suspect]
     Indication: MYELODYSPLASTIC SYNDROME
     Dosage: RECEIVED 4 CURES
     Route: 042

REACTIONS (2)
  - Neuropathy peripheral [None]
  - Peroneal nerve palsy [None]
